FAERS Safety Report 5069510-0 (Version None)
Quarter: 2006Q3

REPORT INFORMATION
  Report Type: 
  Country: None (occurrence: None)
  Receive Date: 20060803
  Receipt Date: 20060713
  Transmission Date: 20061208
  Serious: Yes (Hospitalization)
  Sender: FDA-Public Use
  Company Number: IT-ROCHE-455400

PATIENT
  Age: 87 Year
  Sex: Male

DRUGS (14)
  1. TICLID [Suspect]
     Route: 048
     Dates: start: 20060511, end: 20060514
  2. CARDIRENE [Suspect]
     Route: 048
     Dates: start: 20060401, end: 20060514
  3. CLEXANE [Suspect]
     Dosage: UNITS: REPORTED AS ^IU AXA^
     Route: 058
     Dates: start: 20060510, end: 20060511
  4. ACTIVASE [Suspect]
     Route: 040
     Dates: start: 20060511, end: 20060511
  5. HEPARIN [Suspect]
     Route: 042
     Dates: start: 20060511, end: 20060511
  6. HEPARIN [Suspect]
     Dosage: UNITS =IU
     Route: 042
     Dates: start: 20060511, end: 20060514
  7. ACETAMINOPHEN [Concomitant]
     Dates: start: 20060510, end: 20060514
  8. DILATREND [Concomitant]
     Route: 048
  9. VENITRIN [Concomitant]
     Dates: start: 20060510, end: 20060512
  10. LASIX [Concomitant]
     Route: 048
     Dates: end: 20060513
  11. ALDACTONE [Concomitant]
     Route: 048
     Dates: end: 20060513
  12. FLECTADOL [Concomitant]
     Dates: start: 20060510, end: 20060512
  13. TRIATEC [Concomitant]
  14. MINITRAN [Concomitant]

REACTIONS (2)
  - CEREBRAL HAEMATOMA [None]
  - DRUG INTERACTION [None]
